FAERS Safety Report 8307960-7 (Version None)
Quarter: 2012Q2

REPORT INFORMATION
  Report Type: 
  Country: None (occurrence: None)
  Receive Date: 20120424
  Receipt Date: 20120423
  Transmission Date: 20120825
  Serious: Yes (Hospitalization)
  Sender: FDA-Public Use
  Company Number: US-GLAXOSMITHKLINE-A0939422A

PATIENT
  Age: 19 Year
  Sex: Male

DRUGS (8)
  1. ABILIFY [Concomitant]
  2. FISH OIL [Concomitant]
  3. NAMENDA [Concomitant]
  4. VITAMIN E [Concomitant]
  5. LAMICTAL [Suspect]
     Indication: BIPOLAR DISORDER
     Dosage: 300MG PER DAY
     Route: 048
     Dates: end: 20080701
  6. RISPERDAL [Concomitant]
  7. EFFEXOR [Concomitant]
  8. INDERAL [Concomitant]

REACTIONS (2)
  - STEVENS-JOHNSON SYNDROME [None]
  - EYE INFECTION STAPHYLOCOCCAL [None]
